FAERS Safety Report 8131686-6 (Version None)
Quarter: 2012Q1

REPORT INFORMATION
  Report Type: 
  Country: None (occurrence: None)
  Receive Date: 20120213
  Receipt Date: 20120202
  Transmission Date: 20120608
  Serious: Yes (Hospitalization)
  Sender: FDA-Public Use
  Company Number: CA-JNJFOC-20120201876

PATIENT
  Sex: Female
  Weight: 60 kg

DRUGS (13)
  1. PROCHLORPERAZINE [Concomitant]
     Route: 048
  2. BENADRYL [Concomitant]
     Indication: PREMEDICATION
     Route: 042
  3. CYMBALTA [Concomitant]
     Route: 048
  4. CLONAZEPAM [Concomitant]
     Route: 048
  5. PANTOPRAZOLE [Concomitant]
     Route: 048
  6. GRAVOL TAB [Concomitant]
     Indication: PREMEDICATION
     Route: 042
  7. FENTANYL [Concomitant]
     Route: 062
  8. OXYCODONE HCL [Concomitant]
     Route: 048
  9. SOLU-CORTEF [Concomitant]
     Indication: PREMEDICATION
     Route: 042
  10. REMICADE [Suspect]
     Indication: CROHN'S DISEASE
     Route: 042
     Dates: start: 20081124
  11. DILAUDID [Concomitant]
     Route: 048
  12. DIVALPROEX SODIUM [Concomitant]
     Route: 048
  13. OXAZEPAM [Concomitant]
     Route: 048

REACTIONS (2)
  - ABDOMINAL PAIN UPPER [None]
  - RENAL PAIN [None]
